FAERS Safety Report 18103386 (Version 2)
Quarter: 2020Q3

REPORT INFORMATION
  Report Type: Spontaneous
  Country: US (occurrence: US)
  Receive Date: 20200803
  Receipt Date: 20200804
  Transmission Date: 20201103
  Serious: No
  Sender: FDA-Public Use
  Company Number: US-PFIZER INC-2020292549

PATIENT
  Age: 77 Year
  Sex: Female
  Weight: 77.11 kg

DRUGS (3)
  1. MYSOLINE [Concomitant]
     Active Substance: PRIMIDONE
     Indication: EPILEPSY
     Dosage: 250 MG, DAILY
  2. POTASSIUM CHLORIDE. [Concomitant]
     Active Substance: POTASSIUM CHLORIDE
     Dosage: UNK
  3. PHENYTOIN SODIUM. [Suspect]
     Active Substance: PHENYTOIN SODIUM
     Indication: EPILEPSY
     Dosage: UNK

REACTIONS (1)
  - Drug ineffective [Recovered/Resolved]
